FAERS Safety Report 4926900-1 (Version None)
Quarter: 2006Q1

REPORT INFORMATION
  Report Type: 
  Country: None (occurrence: None)
  Receive Date: 20060228
  Receipt Date: 20050714
  Transmission Date: 20060701
  Serious: No
  Sender: FDA-Public Use
  Company Number: US-GLAXOSMITHKLINE-A0566251A

PATIENT
  Age: 52 Year
  Sex: Female

DRUGS (4)
  1. LAMICTAL [Suspect]
     Indication: BIPOLAR DISORDER
     Dosage: 25MG TWICE PER DAY
     Route: 048
     Dates: start: 20020810, end: 20020801
  2. RISPERDAL [Suspect]
     Indication: BIPOLAR DISORDER
     Dosage: 1.5MG PER DAY
     Route: 048
     Dates: start: 20020601, end: 20020801
  3. RISPERDAL [Concomitant]
  4. LEVOXYL [Concomitant]

REACTIONS (11)
  - ANXIETY [None]
  - BLOOD THYROID STIMULATING HORMONE DECREASED [None]
  - CHROMATURIA [None]
  - CIRCADIAN RHYTHM SLEEP DISORDER [None]
  - EATING DISORDER [None]
  - FATIGUE [None]
  - INSOMNIA [None]
  - MORBID THOUGHTS [None]
  - PHOBIA [None]
  - POST-TRAUMATIC STRESS DISORDER [None]
  - TREMOR [None]
